FAERS Safety Report 4446164-5 (Version None)
Quarter: 2004Q3

REPORT INFORMATION
  Report Type: 
  Country: None (occurrence: None)
  Receive Date: 20040910
  Receipt Date: 20040824
  Transmission Date: 20050211
  Serious: Yes (Hospitalization)
  Sender: FDA-Public Use
  Company Number: JP-JNJFOC-20040900487

PATIENT
  Age: 67 Year
  Sex: Female

DRUGS (1)
  1. ITRIZOLE [Suspect]
     Indication: KERION
     Route: 049

REACTIONS (3)
  - MYALGIA [None]
  - PYREXIA [None]
  - RASH PUSTULAR [None]
